FAERS Safety Report 7911764-4 (Version None)
Quarter: 2011Q4

REPORT INFORMATION
  Report Type: 
  Country: None (occurrence: None)
  Receive Date: 20111114
  Receipt Date: 20111114
  Transmission Date: 20120403
  Serious: No
  Sender: FDA-Public Use
  Company Number: None

PATIENT
  Age: 66 Year
  Sex: Male
  Weight: 74.842 kg

DRUGS (1)
  1. ENBREL [Suspect]
     Indication: RHEUMATOID ARTHRITIS
     Dosage: 50MG INJECTIONS
     Route: 058
     Dates: start: 20110914, end: 20111102

REACTIONS (2)
  - HYPERSOMNIA [None]
  - ASTHENIA [None]
